FAERS Safety Report 22230579 (Version 2)
Quarter: 2023Q2

REPORT INFORMATION
  Report Type: Spontaneous
  Country: US (occurrence: US)
  Receive Date: 20230420
  Receipt Date: 20230525
  Transmission Date: 20230722
  Serious: Yes (Other)
  Sender: FDA-Public Use
  Company Number: US-SA-SAC20230418001459

PATIENT
  Age: 31 Year
  Sex: Male

DRUGS (6)
  1. ELOCTATE [Suspect]
     Active Substance: EFMOROCTOCOG ALFA
     Dosage: 3568/1784 UNITS +/-10% IV DAILY FOR 6 DAYS
     Route: 042
  2. ELOCTATE [Suspect]
     Active Substance: EFMOROCTOCOG ALFA
     Dosage: 3568/1784 UNITS +/-10% IV DAILY FOR 6 DAYS
     Route: 042
  3. ELOCTATE [Suspect]
     Active Substance: EFMOROCTOCOG ALFA
     Dosage: 1784 UNITS +/-10% IV DAILY FOR 7 DAYS AS DIRECTED
     Route: 042
  4. ELOCTATE [Suspect]
     Active Substance: EFMOROCTOCOG ALFA
     Dosage: 1784 UNITS +/-10% IV DAILY FOR 7 DAYS AS DIRECTED
     Route: 042
  5. ELOCTATE [Suspect]
     Active Substance: EFMOROCTOCOG ALFA
     Dosage: TREATED WITH MAJOR DOSE OF ELOCTATE
     Route: 042
     Dates: start: 20230518
  6. ELOCTATE [Suspect]
     Active Substance: EFMOROCTOCOG ALFA
     Dosage: TREATED WITH MAJOR DOSE OF ELOCTATE
     Route: 042
     Dates: start: 20230518

REACTIONS (1)
  - Post procedural haemorrhage [Unknown]

NARRATIVE: CASE EVENT DATE: 20230412
